FAERS Safety Report 6100579-8 (Version None)
Quarter: 2009Q1

REPORT INFORMATION
  Report Type: 
  Country: None (occurrence: None)
  Receive Date: 20090227
  Receipt Date: 20090227
  Transmission Date: 20090719
  Serious: Yes (Hospitalization)
  Sender: FDA-Public Use
  Company Number: None

PATIENT
  Age: 92 Year
  Sex: Male
  Weight: 76.6 kg

DRUGS (4)
  1. WARFARIN SODIUM [Suspect]
     Indication: DEEP VEIN THROMBOSIS
     Dosage: 5MG ALT 2.5MG DAILY PO, CHRONIC
     Route: 048
  2. DARVOCET [Concomitant]
  3. LASIX [Concomitant]
  4. NORVASC [Concomitant]

REACTIONS (6)
  - BALLISMUS [None]
  - DYSARTHRIA [None]
  - DYSKINESIA [None]
  - FALL [None]
  - HAEMORRHAGIC STROKE [None]
  - HIP FRACTURE [None]
